FAERS Safety Report 7230807-7 (Version None)
Quarter: 2011Q1

REPORT INFORMATION
  Report Type: 
  Country: None (occurrence: None)
  Receive Date: 20110118
  Receipt Date: 20110112
  Transmission Date: 20110831
  Serious: Yes (Hospitalization)
  Sender: FDA-Public Use
  Company Number: FR-SANOFI-AVENTIS-2011SA002475

PATIENT
  Age: 90 Year
  Sex: Female

DRUGS (2)
  1. LOVENOX [Suspect]
     Indication: SURGERY
     Route: 058
  2. LOVENOX [Suspect]
     Indication: PROPHYLAXIS
     Route: 058

REACTIONS (1)
  - DEEP VEIN THROMBOSIS [None]
